FAERS Safety Report 8202397-3 (Version None)
Quarter: 2012Q1

REPORT INFORMATION
  Report Type: 
  Country: None (occurrence: None)
  Receive Date: 20120308
  Receipt Date: 20120222
  Transmission Date: 20120608
  Serious: Yes (Congenital Anomaly)
  Sender: FDA-Public Use
  Company Number: UCM201202-000011

PATIENT

DRUGS (3)
  1. LAMOTRIGINE [Suspect]
     Dosage: 300 MG, TRANSPLACENTAL
     Route: 064
  2. PHENYTOIN [Suspect]
     Dosage: 200 MG, TRANSPLACENTAL
     Route: 064
  3. TOPIRAMATE [Suspect]
     Dosage: 550 MG, TRANSPLACENTAL
     Route: 064

REACTIONS (4)
  - MATERNAL DRUGS AFFECTING FOETUS [None]
  - MULTIPLE CONGENITAL ABNORMALITIES [None]
  - CONGENITAL DERMAL SINUS [None]
  - SPINAL CORD DISORDER [None]
